FAERS Safety Report 13347076 (Version 1)
Quarter: 2017Q1

REPORT INFORMATION
  Report Type: Spontaneous
  Country: US (occurrence: US)
  Receive Date: 20170317
  Receipt Date: 20170317
  Transmission Date: 20170428
  Serious: No
  Sender: FDA-Public Use
  Company Number: US-CIPLA LTD.-2016US07123

PATIENT

DRUGS (1)
  1. WARFARIN SODIUM. [Suspect]
     Active Substance: WARFARIN SODIUM
     Dosage: UNKNOWN
     Route: 048

REACTIONS (6)
  - Dizziness [Unknown]
  - Aggression [Unknown]
  - International normalised ratio fluctuation [Unknown]
  - Abdominal pain upper [Unknown]
  - Headache [Unknown]
  - Pain in extremity [Unknown]
